FAERS Safety Report 6988194-5 (Version None)
Quarter: 2010Q3

REPORT INFORMATION
  Report Type: 
  Country: None (occurrence: None)
  Receive Date: 20100916
  Receipt Date: 20100909
  Transmission Date: 20110219
  Serious: Yes (Death)
  Sender: FDA-Public Use
  Company Number: JP-SANOFI-AVENTIS-2010SA047349

PATIENT

DRUGS (3)
  1. TAXOTERE [Suspect]
  2. RANDA [Concomitant]
  3. FLUOROURACIL [Concomitant]

REACTIONS (2)
  - DISSEMINATED INTRAVASCULAR COAGULATION [None]
  - PANCYTOPENIA [None]
